FAERS Safety Report 6046918-8 (Version None)
Quarter: 2009Q1

REPORT INFORMATION
  Report Type: 
  Country: None (occurrence: None)
  Receive Date: 20090122
  Receipt Date: 20090107
  Transmission Date: 20090719
  Serious: Yes (Hospitalization, Other)
  Sender: FDA-Public Use
  Company Number: DE-GENENTECH-275471

PATIENT
  Age: 17 Year
  Sex: Female

DRUGS (3)
  1. RITUXIMAB [Suspect]
     Indication: ACUTE LYMPHOCYTIC LEUKAEMIA
     Dosage: UNK
     Route: 065
     Dates: start: 20080802
  2. CHEMOTHERAPY NOS [Suspect]
     Indication: DRUG USE FOR UNKNOWN INDICATION
     Dosage: UNK
     Route: 065
     Dates: start: 20080812
  3. AMPHOTERICIN B [Concomitant]
     Indication: DRUG USE FOR UNKNOWN INDICATION
     Dosage: UNK
     Dates: start: 20080804

REACTIONS (5)
  - APLASIA [None]
  - FEBRILE INFECTION [None]
  - HYPOTENSION [None]
  - MUCOSAL INFLAMMATION [None]
  - TACHYCARDIA [None]
